FAERS Safety Report 5289619-6 (Version None)
Quarter: 2007Q2

REPORT INFORMATION
  Report Type: 
  Country: None (occurrence: None)
  Receive Date: 20070406
  Receipt Date: 20070322
  Transmission Date: 20071010
  Serious: Yes (Hospitalization)
  Sender: FDA-Public Use
  Company Number: US-JNJFOC-20070200281

PATIENT
  Sex: Male
  Weight: 63.96 kg

DRUGS (9)
  1. REMICADE [Suspect]
     Route: 042
  2. REMICADE [Suspect]
     Indication: CROHN'S DISEASE
     Dosage: ON INFLIXIMAB 5-6 YEARS AGO.
     Route: 042
  3. MEDROL [Concomitant]
  4. 6-MP [Concomitant]
  5. ASACOL [Concomitant]
  6. CLINDEX [Concomitant]
  7. QUESTRON [Concomitant]
  8. PREVACID [Concomitant]
  9. XIFAXAN [Concomitant]

REACTIONS (7)
  - ARTHRALGIA [None]
  - ARTHRITIS [None]
  - BACK PAIN [None]
  - DYSPHAGIA [None]
  - GAIT DISTURBANCE [None]
  - RASH GENERALISED [None]
  - TYPE IV HYPERSENSITIVITY REACTION [None]
